FAERS Safety Report 24880885 (Version 1)
Quarter: 2025Q1

REPORT INFORMATION
  Report Type: Spontaneous
  Country: US (occurrence: US)
  Receive Date: 20250124
  Receipt Date: 20250124
  Transmission Date: 20250409
  Serious: No
  Sender: ELI LILLY AND COMPANY
  Company Number: US-ELI_LILLY_AND_COMPANY-US202501016118

PATIENT
  Age: 56 Year
  Sex: Male

DRUGS (1)
  1. ADCIRCA [Suspect]
     Active Substance: TADALAFIL
     Indication: Pulmonary arterial hypertension
     Dosage: 40 MG, ONCE DAILY
     Route: 048
     Dates: start: 202103

REACTIONS (7)
  - Weight abnormal [Unknown]
  - Abdominal distension [Unknown]
  - Dyspnoea exertional [Unknown]
  - Fatigue [Unknown]
  - Swelling face [Unknown]
  - Dyspepsia [Unknown]
  - Headache [Unknown]
